FAERS Safety Report 8173484-3 (Version None)
Quarter: 2012Q1

REPORT INFORMATION
  Report Type: 
  Country: None (occurrence: None)
  Receive Date: 20120229
  Receipt Date: 20120217
  Transmission Date: 20120608
  Serious: Yes (Disabling)
  Sender: FDA-Public Use
  Company Number: US-JNJFOC-20120213411

PATIENT
  Sex: Female
  Weight: 58 kg

DRUGS (11)
  1. ACETAMINOPHEN [Suspect]
     Indication: HEADACHE
     Route: 065
  2. ALL OTHER THERAPEUTIC PRODUCTS [Suspect]
     Indication: HEADACHE
     Route: 065
  3. VALIUM [Suspect]
     Indication: HEADACHE
     Route: 065
  4. VITAMIN D [Concomitant]
     Indication: PRODUCT USED FOR UNKNOWN INDICATION
     Route: 065
  5. LYRICA [Suspect]
     Indication: NEURALGIA
     Route: 048
     Dates: start: 20100601, end: 20100601
  6. TRAMADOL HCL [Suspect]
     Indication: HEADACHE
     Route: 065
  7. LYRICA [Suspect]
     Indication: MYALGIA
     Route: 048
     Dates: start: 20100601, end: 20100601
  8. IBUPROFEN [Suspect]
     Indication: HEADACHE
     Route: 065
  9. LYRICA [Suspect]
     Indication: FIBROMYALGIA
     Route: 048
     Dates: start: 20100601, end: 20100601
  10. METHYLPREDNISOLONE [Concomitant]
     Indication: MYALGIA
     Route: 065
  11. ACETAMINOPHEN [Suspect]
     Route: 065

REACTIONS (4)
  - DIPLOPIA [None]
  - MIGRAINE WITH AURA [None]
  - MIXED CONNECTIVE TISSUE DISEASE [None]
  - DRUG INEFFECTIVE [None]
